FAERS Safety Report 8120749 (Version 3)
Quarter: 2014Q2

REPORT INFORMATION
  Report Type: Report from Study
  Country: BE (occurrence: BE)
  Receive Date: 20110906
  Receipt Date: 20140624
  Transmission Date: 20141212
  Serious: Yes (Hospitalization, Other)
  Sender: FDA-Public Use
  Company Number: BE-JNJFOC-20110900170

PATIENT
  Age: 34 Year
  Sex: Female
  Weight: 49 kg

DRUGS (7)
  1. REMICADE [Suspect]
     Indication: COLITIS
     Route: 042
     Dates: end: 20110829
  2. REMICADE [Suspect]
     Indication: COLITIS
     Route: 042
     Dates: start: 20090706
  3. REMICADE [Suspect]
     Indication: COLITIS
     Route: 042
     Dates: start: 20120201
  4. REMICADE [Suspect]
     Indication: COLITIS
     Route: 042
     Dates: start: 20071012, end: 20081213
  5. METHOTREXATE [Concomitant]
     Indication: COLITIS
     Dates: start: 200606, end: 20090705
  6. RIFADINE [Concomitant]
     Indication: PROPHYLAXIS
     Dates: start: 20090613, end: 20091213
  7. NICOTIBINE [Concomitant]
     Indication: PROPHYLAXIS
     Dates: start: 20090613, end: 20091213

REACTIONS (2)
  - Glioma [Recovered/Resolved]
  - Mycobacterium tuberculosis complex test positive [Recovered/Resolved]
